FAERS Safety Report 25332518 (Version 1)
Quarter: 2025Q2

REPORT INFORMATION
  Report Type: Spontaneous
  Country: CA (occurrence: CA)
  Receive Date: 20250519
  Receipt Date: 20250519
  Transmission Date: 20250716
  Serious: Yes (Other)
  Sender: MYLAN
  Company Number: CA-MYLANLABS-2025M1040812

PATIENT
  Age: 20 Year
  Sex: Female

DRUGS (8)
  1. PHENYTOIN [Suspect]
     Active Substance: PHENYTOIN
     Indication: Seizure
  2. PHENYTOIN [Suspect]
     Active Substance: PHENYTOIN
     Route: 065
  3. PHENYTOIN [Suspect]
     Active Substance: PHENYTOIN
     Route: 065
  4. PHENYTOIN [Suspect]
     Active Substance: PHENYTOIN
  5. CLOBAZAM [Suspect]
     Active Substance: CLOBAZAM
     Indication: Seizure
  6. CLOBAZAM [Suspect]
     Active Substance: CLOBAZAM
     Route: 065
  7. CLOBAZAM [Suspect]
     Active Substance: CLOBAZAM
     Route: 065
  8. CLOBAZAM [Suspect]
     Active Substance: CLOBAZAM

REACTIONS (1)
  - Seizure [Unknown]
